FAERS Safety Report 17781340 (Version 3)
Quarter: 2020Q2

REPORT INFORMATION
  Report Type: Spontaneous
  Country: US (occurrence: US)
  Receive Date: 20200514
  Receipt Date: 20200527
  Transmission Date: 20200714
  Serious: No
  Sender: FDA-Public Use
  Company Number: US-GW PHARMA-202005USGW01724

PATIENT

DRUGS (4)
  1. ONFI [Concomitant]
     Active Substance: CLOBAZAM
     Dosage: UNK, DOSE DECREASED
     Route: 065
  2. EPIDIOLEX [Suspect]
     Active Substance: CANNABIDIOL
     Indication: LENNOX-GASTAUT SYNDROME
     Dosage: 10 MILLIGRAM, BID
     Route: 048
     Dates: start: 20190726, end: 2019
  3. ONFI [Concomitant]
     Active Substance: CLOBAZAM
     Indication: EPILEPSY
     Dosage: UNK
     Route: 065
  4. EPIDIOLEX [Suspect]
     Active Substance: CANNABIDIOL
     Dosage: DOSE DECREASED
     Route: 048
     Dates: start: 2019, end: 201912

REACTIONS (3)
  - Somnolence [Recovering/Resolving]
  - Insomnia [Recovering/Resolving]
  - Seizure [Recovering/Resolving]

NARRATIVE: CASE EVENT DATE: 2019
